FAERS Safety Report 9846521 (Version 2)
Quarter: 2014Q1

REPORT INFORMATION
  Report Type: Spontaneous
  Country: GB (occurrence: None)
  Receive Date: 20140117
  Receipt Date: 20140122
  Transmission Date: 20141002
  Serious: Yes (Other)
  Sender: FDA-Public Use
  Company Number: AUR-APL-2014-00338

PATIENT
  Age: 70 Year
  Sex: Female
  Weight: 87.5 kg

DRUGS (5)
  1. RAMIPRIL [Suspect]
     Indication: PRODUCT USED FOR UNKNOWN INDICATION
     Dates: start: 20130917
  2. AMLODIPINE (AMLODIPINE) [Concomitant]
  3. BENDROFLUMETHIAZIDE [Concomitant]
  4. LOCORTEN-VIOFORM [Concomitant]
  5. TRIMETHOPRIM [Concomitant]

REACTIONS (6)
  - Genital haemorrhage [None]
  - Vaginal haemorrhage [None]
  - Epistaxis [None]
  - Dry eye [None]
  - Mucosal haemorrhage [None]
  - Mouth haemorrhage [None]
